FAERS Safety Report 24876170 (Version 2)
Quarter: 2025Q1

REPORT INFORMATION
  Report Type: Spontaneous
  Country: FR (occurrence: FR)
  Receive Date: 20250123
  Receipt Date: 20250213
  Transmission Date: 20250408
  Serious: Yes (Hospitalization, Other)
  Sender: CSL BEHRING
  Company Number: None

PATIENT
  Age: 67 Year
  Sex: Female
  Weight: 76 kg

DRUGS (9)
  1. PRIVIGEN [Suspect]
     Active Substance: HUMAN IMMUNOGLOBULIN G
     Indication: Myasthenic syndrome
     Dosage: 30 G, QD
     Route: 042
     Dates: start: 20241205, end: 20241209
  2. PRIVIGEN [Suspect]
     Active Substance: HUMAN IMMUNOGLOBULIN G
     Dosage: 30 G, QD
     Route: 042
     Dates: start: 20241205, end: 20241209
  3. MEROPENEM [Suspect]
     Active Substance: MEROPENEM
     Indication: Pneumonia
     Dosage: 4 G, QD
     Route: 042
     Dates: start: 20241216, end: 20241222
  4. TERBUTALINE [Suspect]
     Active Substance: TERBUTALINE
     Indication: Pneumonia
     Dosage: 15 MG, QD
     Route: 055
     Dates: start: 20241022, end: 20241222
  5. KARDEGIC [Concomitant]
     Active Substance: ASPIRIN DL-LYSINE
  6. ATORVASTATIN [Concomitant]
     Active Substance: ATORVASTATIN
  7. LEVETIRACETAM [Concomitant]
     Active Substance: LEVETIRACETAM
  8. LACOSAMIDE [Concomitant]
     Active Substance: LACOSAMIDE
  9. SPIRONOLACTONE [Concomitant]
     Active Substance: SPIRONOLACTONE

REACTIONS (1)
  - Posterior reversible encephalopathy syndrome [Recovering/Resolving]

NARRATIVE: CASE EVENT DATE: 20241216
